FAERS Safety Report 11505659 (Version 1)
Quarter: 2015Q3

REPORT INFORMATION
  Report Type: Spontaneous
  Country: US (occurrence: US)
  Receive Date: 20150915
  Receipt Date: 20150915
  Transmission Date: 20151125
  Serious: No
  Sender: FDA-Public Use
  Company Number: US-ROCHE-797749

PATIENT
  Age: 55 Year
  Sex: Female

DRUGS (2)
  1. PEGASYS [Suspect]
     Active Substance: PEGINTERFERON ALFA-2A
     Indication: CHRONIC HEPATITIS C
     Dosage: FREQUENCY:WEEKLY
     Route: 058
  2. RIBAVIRIN. [Concomitant]
     Active Substance: RIBAVIRIN
     Indication: CHRONIC HEPATITIS C
     Dosage: DOSE:400, UNIT UNSPECIFIED
     Route: 048

REACTIONS (2)
  - Injection site rash [Recovered/Resolved]
  - Injection site reaction [Unknown]

NARRATIVE: CASE EVENT DATE: 20110817
